FAERS Safety Report 7896136 (Version 9)
Quarter: 2013Q3

REPORT INFORMATION
  Report Type: Report from Study
  Country: NL (occurrence: NL)
  Receive Date: 20110413
  Receipt Date: 20130701
  Transmission Date: 20140515
  Serious: Yes (Life-Threatening, Hospitalization, Other)
  Sender: FDA-Public Use
  Company Number: NL-BIOGENIDEC-2011BI013438

PATIENT
  Age: 43 Year
  Sex: Male
  Weight: 65 kg

DRUGS (6)
  1. TYSABRI [Suspect]
     Indication: MULTIPLE SCLEROSIS
     Route: 042
     Dates: start: 20080717, end: 20110318
  2. SYMMETREL [Concomitant]
     Route: 048
  3. PROZAC [Concomitant]
     Route: 048
  4. OMNIC [Concomitant]
     Route: 048
  5. LIORESAL [Concomitant]
     Route: 048
  6. DIAZEPAM [Concomitant]
     Route: 048

REACTIONS (2)
  - Progressive multifocal leukoencephalopathy [Recovered/Resolved]
  - Immune reconstitution inflammatory syndrome [Recovered/Resolved]
